FAERS Safety Report 17759775 (Version 1)
Quarter: 2020Q2

REPORT INFORMATION
  Report Type: Spontaneous
  Country: US (occurrence: US)
  Receive Date: 20200507
  Receipt Date: 20200507
  Transmission Date: 20200714
  Serious: No
  Sender: FDA-Public Use
  Company Number: None

PATIENT
  Age: 64 Year
  Sex: Male

DRUGS (3)
  1. CAPECITABINE TAB 500MG [Suspect]
     Active Substance: CAPECITABINE
     Route: 048
     Dates: start: 202004
  2. LEUCOVORIN. [Concomitant]
     Active Substance: LEUCOVORIN
  3. AVASTIN [Concomitant]
     Active Substance: BEVACIZUMAB

REACTIONS (3)
  - Diarrhoea [None]
  - Haematochezia [None]
  - Abdominal pain [None]

NARRATIVE: CASE EVENT DATE: 20200507
